FAERS Safety Report 18387296 (Version 1)
Quarter: 2020Q4

REPORT INFORMATION
  Report Type: Spontaneous
  Country: US (occurrence: US)
  Receive Date: 20201014
  Receipt Date: 20201014
  Transmission Date: 20210114
  Serious: Yes (Hospitalization)
  Sender: FDA-Public Use
  Company Number: None

PATIENT
  Age: 8 Year
  Sex: Male
  Weight: 23.8 kg

DRUGS (4)
  1. METHOTREXATE. [Suspect]
     Active Substance: METHOTREXATE
     Dates: end: 20201009
  2. GLEEVEC [Suspect]
     Active Substance: IMATINIB MESYLATE
     Dates: end: 20201009
  3. VINCRISTINE SULFATE. [Suspect]
     Active Substance: VINCRISTINE SULFATE
     Dates: end: 20201009
  4. ONCASPAR [Suspect]
     Active Substance: PEGASPARGASE
     Dates: end: 20200918

REACTIONS (1)
  - Serum colour abnormal [None]

NARRATIVE: CASE EVENT DATE: 20201012
